FAERS Safety Report 20455942 (Version 2)
Quarter: 2022Q1

REPORT INFORMATION
  Report Type: Report from Study
  Country: US (occurrence: US)
  Receive Date: 20220210
  Receipt Date: 20220221
  Transmission Date: 20220424
  Serious: Yes (Hospitalization, Other)
  Sender: FDA-Public Use
  Company Number: US-CLOVIS ONCOLOGY-CLO-2022-000206

PATIENT
  Age: 62 Year
  Sex: Female

DRUGS (2)
  1. RUBRACA [Suspect]
     Active Substance: RUCAPARIB CAMSYLATE
     Indication: Ovarian cancer
     Dosage: 300 MILLIGRAM, BID
     Route: 048
     Dates: start: 20210531, end: 20220121
  2. RUBRACA [Suspect]
     Active Substance: RUCAPARIB CAMSYLATE
     Dosage: 300 MILLIGRAM, BID
     Route: 048
     Dates: start: 202003

REACTIONS (3)
  - Fall [Unknown]
  - Limb operation [Unknown]
  - Shoulder operation [Unknown]

NARRATIVE: CASE EVENT DATE: 20220120
